FAERS Safety Report 23296632 (Version 1)
Quarter: 2023Q4

REPORT INFORMATION
  Report Type: Spontaneous
  Country: CN (occurrence: CN)
  Receive Date: 20231214
  Receipt Date: 20231214
  Transmission Date: 20240110
  Serious: Yes (Disabling, Other)
  Sender: FDA-Public Use
  Company Number: CN-PFIZER INC-PV202300199944

PATIENT
  Age: 57 Year
  Sex: Male
  Weight: 50 kg

DRUGS (7)
  1. AXITINIB [Suspect]
     Active Substance: AXITINIB
     Indication: Renal cancer
     Dosage: 5 MG, 1X/DAY
     Route: 048
     Dates: start: 20230406, end: 20230420
  2. BETAMETHASONE SODIUM PHOSPHATE [Suspect]
     Active Substance: BETAMETHASONE SODIUM PHOSPHATE
     Indication: Antiinflammatory therapy
     Dosage: 8 MG, 1X/DAY
     Route: 041
     Dates: start: 20230413, end: 20230415
  3. BETAMETHASONE SODIUM PHOSPHATE [Suspect]
     Active Substance: BETAMETHASONE SODIUM PHOSPHATE
     Dosage: 6 MG, 1X/DAY
     Route: 041
     Dates: start: 20230416, end: 20230416
  4. BETAMETHASONE SODIUM PHOSPHATE [Suspect]
     Active Substance: BETAMETHASONE SODIUM PHOSPHATE
     Dosage: 4 MG, 1X/DAY
     Route: 041
     Dates: start: 20230417, end: 20230419
  5. SODIUM CHLORIDE [Concomitant]
     Active Substance: SODIUM CHLORIDE
     Indication: Vehicle solution use
     Dosage: 100 ML, 1X/DAY
     Route: 041
     Dates: start: 20230413, end: 20230415
  6. SODIUM CHLORIDE [Concomitant]
     Active Substance: SODIUM CHLORIDE
     Dosage: 100 ML, 1X/DAY
     Route: 041
     Dates: start: 20230416, end: 20230416
  7. SODIUM CHLORIDE [Concomitant]
     Active Substance: SODIUM CHLORIDE
     Dosage: 100 ML, 1X/DAY
     Route: 041
     Dates: start: 20230417, end: 20230419

REACTIONS (3)
  - Hepatic function abnormal [Recovering/Resolving]
  - Drug-induced liver injury [Recovering/Resolving]
  - Off label use [Unknown]

NARRATIVE: CASE EVENT DATE: 20230419
